FAERS Safety Report 8642290 (Version 2)
Quarter: 2014Q1

REPORT INFORMATION
  Report Type: Spontaneous
  Country: US (occurrence: None)
  Receive Date: 20120323
  Receipt Date: 20130305
  Transmission Date: 20141002
  Serious: Yes (Hospitalization, Other)
  Sender: FDA-Public Use
  Company Number: 163-21880-11102359

PATIENT
  Age: 63 Year
  Sex: Female
  Weight: 56.7 kg

DRUGS (12)
  1. REVLIMID [Suspect]
     Indication: MYELODYSPLASTIC SYNDROME
     Dosage: 10 MG, QD, PO
     Route: 048
     Dates: start: 20111011, end: 20111104
  2. BLOOD TRANSFUSION  (BLOOD TRANSFUSION, AUXILIARY PRODUCTS) [Concomitant]
  3. ACIPHEX [Concomitant]
  4. ARANESP [Concomitant]
  5. ASPIRIN (ACETYLSALICYLIC ACID) [Concomitant]
  6. COD-LIVER OIL [Concomitant]
  7. D3 + K2 DOTS (COLECALCIFEROL) [Concomitant]
  8. FOLIC ACID [Concomitant]
  9. VITAMINS [Concomitant]
  10. ACYCLOVIR (ACICLOVIR) (ACICLOVIR) [Concomitant]
  11. NOXACIL (UNKNOWN) [Concomitant]
  12. PEPCID (FAMOTIDINE) (UNKNOWN) [Concomitant]

REACTIONS (8)
  - Myelodysplastic syndrome transformation [None]
  - Acute myeloid leukaemia [None]
  - Pleural effusion [None]
  - Haemoglobin decreased [None]
  - Platelet count decreased [None]
  - Rash generalised [None]
  - Dyspnoea [None]
  - Fluid overload [None]
